FAERS Safety Report 16736780 (Version 2)
Quarter: 2020Q3

REPORT INFORMATION
  Report Type: Spontaneous
  Country: US (occurrence: US)
  Receive Date: 20190823
  Receipt Date: 20200922
  Transmission Date: 20201102
  Serious: Yes (Other)
  Sender: FDA-Public Use
  Company Number: US-JNJFOC-20190827515

PATIENT
  Age: 39 Year
  Sex: Female
  Weight: 74.91 kg

DRUGS (7)
  1. PROMETRIUM [Concomitant]
     Active Substance: PROGESTERONE
     Dosage: EXPOSED FOR 9 WEEKS
     Dates: start: 201908, end: 20191020
  2. STELARA [Suspect]
     Active Substance: USTEKINUMAB
     Route: 058
     Dates: start: 201911
  3. LABETALOL [Concomitant]
     Active Substance: LABETALOL\LABETALOL HYDROCHLORIDE
     Dosage: EXPOSED FOR16 WEEKS
     Dates: start: 201908
  4. ENALAPRIL [Concomitant]
     Active Substance: ENALAPRIL
     Indication: PRODUCT USED FOR UNKNOWN INDICATION
     Dosage: EXPOSED FOR 7 WEEKS
     Dates: start: 201408, end: 201908
  5. STELARA [Suspect]
     Active Substance: USTEKINUMAB
     Indication: PSORIASIS
     Route: 058
     Dates: start: 20190515
  6. GLUCOPHAGE [Concomitant]
     Active Substance: METFORMIN HYDROCHLORIDE
     Dosage: EXPOSED FOR 9 WEEKS
     Dates: start: 201908, end: 20191020
  7. SIMVASTATIN. [Concomitant]
     Active Substance: SIMVASTATIN
     Dosage: EXPOSED FOR 16 WEEKS
     Dates: start: 201408

REACTIONS (4)
  - Off label use [Unknown]
  - Abortion spontaneous [Recovered/Resolved]
  - Exposure during pregnancy [Unknown]
  - Inappropriate schedule of product administration [Unknown]

NARRATIVE: CASE EVENT DATE: 20190515
